FAERS Safety Report 24134178 (Version 1)
Quarter: 2024Q3

REPORT INFORMATION
  Report Type: Spontaneous
  Country: FR (occurrence: FR)
  Receive Date: 20240724
  Receipt Date: 20240724
  Transmission Date: 20241016
  Serious: Yes (Other)
  Sender: BRISTOL MYERS SQUIBB
  Company Number: FR-BRISTOL-MYERS SQUIBB COMPANY-2024-117687

PATIENT
  Age: 52 Year
  Sex: Male

DRUGS (2)
  1. NIVOLUMAB [Suspect]
     Active Substance: NIVOLUMAB
     Indication: Angioimmunoblastic T-cell lymphoma
     Dosage: 3MG/KG EVERY 14 DAYS
  2. VIDAZA [Suspect]
     Active Substance: AZACITIDINE
     Indication: Angioimmunoblastic T-cell lymphoma
     Dosage: 75 MG/M2 SUBCUTANEOUSLY FOR 7 CONSECUTIVE DAYS?EVERY 28 DAYS
     Route: 058

REACTIONS (2)
  - Hypothyroidism [Unknown]
  - Off label use [Unknown]
